FAERS Safety Report 12650845 (Version 1)
Quarter: 2016Q3

REPORT INFORMATION
  Report Type: Spontaneous
  Country: US (occurrence: US)
  Receive Date: 20160815
  Receipt Date: 20160815
  Transmission Date: 20161109
  Serious: No
  Sender: FDA-Public Use
  Company Number: US-JAZZ-2016-US-005280

PATIENT

DRUGS (57)
  1. XYREM [Suspect]
     Active Substance: SODIUM OXYBATE
     Dosage: 4.5 G, BID
     Route: 048
     Dates: start: 201112, end: 2012
  2. CEFDINIR. [Concomitant]
     Active Substance: CEFDINIR
  3. L-TYROSINE [Concomitant]
  4. MOLYBDENUM [Concomitant]
     Active Substance: MOLYBDENUM
  5. NIACINAMIDE [Concomitant]
     Active Substance: NIACINAMIDE
  6. PROBIOTIC [Concomitant]
     Active Substance: PROBIOTICS NOS
  7. VITAMIN C [Concomitant]
     Active Substance: ASCORBIC ACID
  8. VITAMIN E [Concomitant]
     Active Substance: .ALPHA.-TOCOPHEROL
  9. CORTIZONE 10 [Concomitant]
     Active Substance: HYDROCORTISONE
  10. EMSAM [Concomitant]
     Active Substance: SELEGILINE
  11. TEA [Concomitant]
     Active Substance: TEA LEAF
  12. LIOTHYRONINE SODIUM. [Concomitant]
     Active Substance: LIOTHYRONINE SODIUM
  13. PENTOXIFYLLINE ER [Concomitant]
  14. STRATTERA [Concomitant]
     Active Substance: ATOMOXETINE HYDROCHLORIDE
  15. PSEUDOEPHEDRINE [Concomitant]
     Active Substance: PSEUDOEPHEDRINE
  16. QNASL [Concomitant]
     Active Substance: BECLOMETHASONE DIPROPIONATE
  17. FLUTICASONE PROPIONATE. [Concomitant]
     Active Substance: FLUTICASONE PROPIONATE
  18. XYREM [Suspect]
     Active Substance: SODIUM OXYBATE
     Indication: CATAPLEXY
     Dosage: DOSE ADJUSTMENTS
     Route: 048
  19. LEVOTHYROXINE. [Concomitant]
     Active Substance: LEVOTHYROXINE
  20. MELATONIN [Concomitant]
     Active Substance: MELATONIN
  21. ZITHROMAX [Concomitant]
     Active Substance: AZITHROMYCIN DIHYDRATE
  22. ALLEGRA ALLERGY [Concomitant]
     Active Substance: FEXOFENADINE HYDROCHLORIDE
  23. EQUILIBRANE [Concomitant]
  24. DHEA [Concomitant]
     Active Substance: PRASTERONE
  25. FLUDROCORTISONE [Concomitant]
     Active Substance: FLUDROCORTISONE
  26. NALTREXONE [Concomitant]
     Active Substance: NALTREXONE
  27. PROBIOTIC ACIDOPHILUS [Concomitant]
     Active Substance: LACTOBACILLUS ACIDOPHILUS
  28. TYLENOL WITH CODEINE [Concomitant]
     Active Substance: ACETAMINOPHEN\CODEINE PHOSPHATE
  29. CATAPRES [Concomitant]
     Active Substance: CLONIDINE HYDROCHLORIDE
  30. COENZYME Q10 [Concomitant]
     Active Substance: UBIDECARENONE
  31. DIFLUCAN [Concomitant]
     Active Substance: FLUCONAZOLE
  32. VITAMIN A [Concomitant]
     Active Substance: VITAMIN A
  33. XYREM [Suspect]
     Active Substance: SODIUM OXYBATE
     Indication: NARCOLEPSY
     Dosage: 2.25 G, BID
     Route: 048
     Dates: start: 201111, end: 201112
  34. VITAMIN D [Concomitant]
     Active Substance: CHOLECALCIFEROL
  35. GINKGO BILOBA [Concomitant]
     Active Substance: GINKGO
  36. XYREM [Suspect]
     Active Substance: SODIUM OXYBATE
     Dosage: DOSE ADJUSTMENTS
     Route: 048
  37. XYREM [Suspect]
     Active Substance: SODIUM OXYBATE
     Dosage: 4.5 G, BID
     Route: 048
     Dates: start: 201503
  38. KEPPRA [Concomitant]
     Active Substance: LEVETIRACETAM
  39. RESTASIS [Concomitant]
     Active Substance: CYCLOSPORINE
  40. FISH OIL DR [Concomitant]
  41. PHENTERMINE. [Concomitant]
     Active Substance: PHENTERMINE
  42. ULTIMATE IRON [Concomitant]
  43. VITAMIN B COMPLEX [Concomitant]
     Active Substance: CYANOCOBALAMIN\DEXPANTHENOL\NIACINAMIDE\PYRIDOXINE HYDROCHLORIDE\RIBOFLAVIN 5^-PHOSPHATE SODIUM\THIAMINE HYDROCHLORIDE\VITAMIN B COMPLEX
  44. APRISO ER [Concomitant]
  45. CYANOCOBALAMIN. [Concomitant]
     Active Substance: CYANOCOBALAMIN
  46. LORAZEPAM. [Concomitant]
     Active Substance: LORAZEPAM
  47. NYSTATIN. [Concomitant]
     Active Substance: NYSTATIN
  48. HYDROCORTISONE. [Concomitant]
     Active Substance: HYDROCORTISONE
  49. ZOLPIDEM TARTRATE. [Concomitant]
     Active Substance: ZOLPIDEM TARTRATE
  50. XYREM [Suspect]
     Active Substance: SODIUM OXYBATE
     Dosage: 2.25 G, BID
     Route: 048
     Dates: start: 201501, end: 201501
  51. FOLIC ACID. [Concomitant]
     Active Substance: FOLIC ACID
  52. MAGNESIUM [Concomitant]
     Active Substance: MAGNESIUM
  53. MUCINEX ER [Concomitant]
  54. VITAMIN K [Concomitant]
     Active Substance: PHYTONADIONE
  55. VITAMIN B12 [Concomitant]
     Active Substance: CYANOCOBALAMIN
  56. L-CARNITINE [Concomitant]
     Active Substance: LEVOCARNITINE
  57. QVAR [Concomitant]
     Active Substance: BECLOMETHASONE DIPROPIONATE

REACTIONS (1)
  - Intentional product use issue [Unknown]
